FAERS Safety Report 6372988-3 (Version None)
Quarter: 2009Q3

REPORT INFORMATION
  Report Type: 
  Country: None (occurrence: None)
  Receive Date: 20090924
  Receipt Date: 20090220
  Transmission Date: 20100115
  Serious: Yes (Hospitalization)
  Sender: FDA-Public Use
  Company Number: US-ASTRAZENECA-2009AC00615

PATIENT
  Age: 85 Year
  Sex: Female

DRUGS (16)
  1. QUETIAPINE FUMARATE [Suspect]
     Indication: AGITATION
     Dosage: IN DIVIDED DOSES
  2. QUETIAPINE FUMARATE [Suspect]
     Indication: HALLUCINATION
     Dosage: IN DIVIDED DOSES
  3. QUETIAPINE FUMARATE [Suspect]
     Indication: DELUSION
     Dosage: IN DIVIDED DOSES
  4. DIVALPROEX SODIUM [Suspect]
     Indication: MOOD SWINGS
  5. DIVALPROEX SODIUM [Suspect]
     Indication: AGITATION
  6. SERTRALINE HCL [Suspect]
     Indication: DEPRESSION
  7. SERTRALINE HCL [Suspect]
     Indication: AGITATION
  8. LORAZEPAM [Suspect]
     Indication: ANXIETY
     Dosage: 4-6 MG DAILY IN DIVIDED DOSES
  9. LORAZEPAM [Suspect]
     Indication: AGITATION
     Dosage: 4-6 MG DAILY IN DIVIDED DOSES
  10. ASPIRIN [Suspect]
  11. LEVOTHYROXINE SODIUM [Concomitant]
  12. DIGOXIN [Concomitant]
  13. ENOXAPARIN [Concomitant]
  14. METOPROLOL TARTRATE [Concomitant]
  15. SIMVASTATIN [Concomitant]
  16. PANTOPRAZOLE SODIUM [Concomitant]

REACTIONS (2)
  - DELIRIUM [None]
  - PSYCHOTIC DISORDER [None]
